FAERS Safety Report 11319362 (Version 1)
Quarter: 2015Q3

REPORT INFORMATION
  Report Type: Spontaneous
  Country: US (occurrence: None)
  Receive Date: 20150727
  Receipt Date: 20150727
  Transmission Date: 20151125
  Serious: Yes (Disabling)
  Sender: FDA-Public Use
  Company Number: None

PATIENT
  Age: 30 Year
  Sex: Male
  Weight: 79.38 kg

DRUGS (4)
  1. ALEVE [Concomitant]
     Active Substance: NAPROXEN SODIUM
  2. ABILIFY [Suspect]
     Active Substance: ARIPIPRAZOLE
     Indication: MENTAL DISORDER
     Dosage: 1 PILL ONCE DAILY TAKEN BY MOUTH
     Route: 048
     Dates: start: 20150716, end: 20150723
  3. NALTREXONE [Concomitant]
     Active Substance: NALTREXONE
  4. VITAMINS [Concomitant]
     Active Substance: VITAMINS

REACTIONS (10)
  - Nausea [None]
  - Lymphadenopathy [None]
  - Feeling hot [None]
  - Chills [None]
  - Anxiety [None]
  - Dyspnoea [None]
  - Headache [None]
  - Thirst [None]
  - Suicidal ideation [None]
  - Insomnia [None]

NARRATIVE: CASE EVENT DATE: 20150723
